FAERS Safety Report 19501498 (Version 2)
Quarter: 2021Q3

REPORT INFORMATION
  Report Type: Spontaneous
  Country: US (occurrence: US)
  Receive Date: 20210707
  Receipt Date: 20210804
  Transmission Date: 20211014
  Serious: No
  Sender: FDA-Public Use
  Company Number: US-AMGEN-USASP2021101182

PATIENT
  Age: 67 Year
  Sex: Female

DRUGS (2)
  1. VITAMIN D [ERGOCALCIFEROL] [Concomitant]
     Active Substance: ERGOCALCIFEROL
     Indication: ALOPECIA
     Dosage: 500000 INTERNATIONAL UNIT, QWK
  2. PROLIA [Suspect]
     Active Substance: DENOSUMAB
     Indication: PROPHYLAXIS
     Dosage: UNK
     Route: 065
     Dates: start: 20201230

REACTIONS (8)
  - Back pain [Not Recovered/Not Resolved]
  - Headache [Recovered/Resolved]
  - Off label use [Unknown]
  - Pain [Unknown]
  - Tooth fracture [Unknown]
  - Insomnia [Unknown]
  - Arthralgia [Unknown]
  - Swelling face [Unknown]

NARRATIVE: CASE EVENT DATE: 20201230
